FAERS Safety Report 12463331 (Version 1)
Quarter: 2016Q2

REPORT INFORMATION
  Report Type: Spontaneous
  Country: US (occurrence: None)
  Receive Date: 20160613
  Receipt Date: 20160613
  Transmission Date: 20160815
  Serious: Yes (Life-Threatening, Hospitalization)
  Sender: FDA-Public Use
  Company Number: None

PATIENT
  Age: 61 Year
  Sex: Male
  Weight: 48.3 kg

DRUGS (1)
  1. ADENOSINE. [Suspect]
     Active Substance: ADENOSINE
     Indication: ANGIOGRAM
     Dates: start: 20160511, end: 20160511

REACTIONS (2)
  - Cyanosis [None]
  - Bronchospasm [None]

NARRATIVE: CASE EVENT DATE: 20160511
